FAERS Safety Report 21185185 (Version 2)
Quarter: 2022Q3

REPORT INFORMATION
  Report Type: Spontaneous
  Country: US (occurrence: US)
  Receive Date: 20220808
  Receipt Date: 20220808
  Transmission Date: 20221027
  Serious: Yes (Other)
  Sender: FDA-Public Use
  Company Number: US-PFIZER INC-PV202200036786

PATIENT
  Age: 55 Year
  Sex: Male

DRUGS (4)
  1. SOLU-MEDROL [Suspect]
     Active Substance: METHYLPREDNISOLONE SODIUM SUCCINATE
  2. THYMOCYTE IMMUNE GLOBULIN NOS [Suspect]
     Active Substance: THYMOCYTE IMMUNE GLOBULIN NOS
  3. DEXAMETHASONE [Suspect]
     Active Substance: DEXAMETHASONE
  4. BASILIXIMAB [Suspect]
     Active Substance: BASILIXIMAB

REACTIONS (3)
  - COVID-19 [Unknown]
  - Fungal infection [Unknown]
  - Off label use [Unknown]
